FAERS Safety Report 5568473-9 (Version None)
Quarter: 2007Q4

REPORT INFORMATION
  Report Type: 
  Country: None (occurrence: None)
  Receive Date: 20071217
  Receipt Date: 20071204
  Transmission Date: 20080405
  Serious: Yes (Other)
  Sender: FDA-Public Use
  Company Number: 230912J07USA

PATIENT
  Age: 70 Year
  Sex: Female

DRUGS (9)
  1. REBIF [Suspect]
     Indication: MULTIPLE SCLEROSIS
     Dosage: 44 MCG, 3 IN 1 WEEKS, SUBCUTANEOUS
     Route: 058
     Dates: start: 20071127
  2. FOSAMAX [Concomitant]
  3. LASIX (FUROSEMIDE /00032601/) [Concomitant]
  4. COUMADIN [Concomitant]
  5. ZANTAC 150 [Concomitant]
  6. PREDNISOLONE (PREDNISONE /00044701/) [Concomitant]
  7. METFORMIN (METFORMIN) [Concomitant]
  8. ORLISTAT (ORLISTAT) [Concomitant]
  9. MULTI-VITAMINS [Concomitant]

REACTIONS (6)
  - CHEST PAIN [None]
  - DYSPNOEA [None]
  - FEELING OF BODY TEMPERATURE CHANGE [None]
  - LOSS OF CONSCIOUSNESS [None]
  - NAUSEA [None]
  - STARING [None]
